FAERS Safety Report 14266963 (Version 2)
Quarter: 2018Q1

REPORT INFORMATION
  Report Type: Spontaneous
  Country: US (occurrence: US)
  Receive Date: 20171211
  Receipt Date: 20180222
  Transmission Date: 20180508
  Serious: No
  Sender: FDA-Public Use
  Company Number: US-STRIDES ARCOLAB LIMITED-2017SP013824

PATIENT

DRUGS (1)
  1. IBUPROFEN. [Suspect]
     Active Substance: IBUPROFEN
     Indication: PYREXIA
     Dosage: 7.5 MG/KG, SINGLE
     Route: 065

REACTIONS (4)
  - Off label use [Unknown]
  - Vomiting [Unknown]
  - Headache [Unknown]
  - Rash [Unknown]
